FAERS Safety Report 7493640-7 (Version None)
Quarter: 2011Q2

REPORT INFORMATION
  Report Type: 
  Country: None (occurrence: None)
  Receive Date: 20110520
  Receipt Date: 20110516
  Transmission Date: 20111010
  Serious: Yes (Death)
  Sender: FDA-Public Use
  Company Number: US-SANOFI-AVENTIS-2011SA025269

PATIENT
  Sex: Male

DRUGS (5)
  1. WELLBUTRIN [Suspect]
     Indication: DEPRESSION
     Route: 048
     Dates: start: 20110310, end: 20110516
  2. TRAZODONE HCL [Suspect]
     Indication: INSOMNIA
     Dosage: ON AND OFF USE
     Route: 048
     Dates: start: 20110101, end: 20110316
  3. CELEXA [Suspect]
     Indication: DEPRESSION
     Route: 048
     Dates: start: 20110310, end: 20110316
  4. ATIVAN [Concomitant]
     Indication: INSOMNIA
     Dates: start: 20101101
  5. ZOLPIDEM TARTRATE [Suspect]
     Indication: INSOMNIA
     Route: 048
     Dates: start: 20101101, end: 20110316

REACTIONS (4)
  - OVERDOSE [None]
  - EMOTIONAL DISORDER [None]
  - DRUG INEFFECTIVE [None]
  - DROWNING [None]
